FAERS Safety Report 4469308-8 (Version None)
Quarter: 2004Q4

REPORT INFORMATION
  Report Type: 
  Country: None (occurrence: None)
  Receive Date: 20041008
  Receipt Date: 20031014
  Transmission Date: 20050328
  Serious: No
  Sender: FDA-Public Use
  Company Number: US-BRISTOL-MYERS SQUIBB COMPANY-12420600

PATIENT
  Age: 62 Year
  Sex: Female
  Weight: 91 kg

DRUGS (15)
  1. AVAPRO [Suspect]
     Indication: HYPERTENSION
     Dosage: DURATION OF THERAPY:  ^4-5 YEARS^
  2. HUMALOG [Concomitant]
  3. LANTUS [Concomitant]
  4. LASIX [Concomitant]
  5. NORVASC [Concomitant]
  6. CLARINEX [Concomitant]
  7. POTASSIUM [Concomitant]
  8. CHROMIUM [Concomitant]
  9. HORMONES [Concomitant]
  10. MAGNESIUM [Concomitant]
  11. PRILOSEC [Concomitant]
  12. LIPITOR [Concomitant]
  13. SYNTHROID [Concomitant]
  14. ASPIRIN [Concomitant]
  15. GLUCOPHAGE XR [Concomitant]

REACTIONS (1)
  - HYPERTENSION [None]
